FAERS Safety Report 12195288 (Version 1)
Quarter: 2016Q1

REPORT INFORMATION
  Report Type: Spontaneous
  Country: US (occurrence: None)
  Receive Date: 20160318
  Receipt Date: 20160318
  Transmission Date: 20160526
  Serious: Yes (Hospitalization)
  Sender: FDA-Public Use
  Company Number: None

PATIENT
  Age: 79 Year
  Sex: Male

DRUGS (1)
  1. CAPECITABINE 500 MG [Suspect]
     Active Substance: CAPECITABINE
     Indication: OESOPHAGEAL CARCINOMA
     Dosage: 1500 MG PO Q AM
     Route: 048
     Dates: start: 20160204, end: 20160308

REACTIONS (2)
  - Disease progression [None]
  - Dehydration [None]

NARRATIVE: CASE EVENT DATE: 20160308
